FAERS Safety Report 23665410 (Version 1)
Quarter: 2024Q1

REPORT INFORMATION
  Report Type: Spontaneous
  Country: US (occurrence: US)
  Receive Date: 20240323
  Receipt Date: 20240323
  Transmission Date: 20240409
  Serious: No
  Sender: FDA-Public Use
  Company Number: US-ABBVIE-5681070

PATIENT
  Sex: Female
  Weight: 59 kg

DRUGS (2)
  1. LATISSE [Suspect]
     Active Substance: BIMATOPROST
     Indication: Growth of eyelashes
     Dosage: FORM STRENGTH: 5 MILLILITRE, FREQUENCY TEXT: 1 DROP EACH ONCE A DAY AT MORNING, STOP DATE TEXT: 7...
     Route: 050
     Dates: start: 20240102, end: 20240308
  2. SERTRALINE [Concomitant]
     Active Substance: SERTRALINE HYDROCHLORIDE
     Indication: Anxiety

REACTIONS (3)
  - Eyelids pruritus [Not Recovered/Not Resolved]
  - Skin irritation [Unknown]
  - Pruritus [Unknown]

NARRATIVE: CASE EVENT DATE: 20240101
